FAERS Safety Report 12093149 (Version 1)
Quarter: 2016Q1

REPORT INFORMATION
  Report Type: Spontaneous
  Country: US (occurrence: US)
  Receive Date: 20160219
  Receipt Date: 20160219
  Transmission Date: 20160526
  Serious: No
  Sender: FDA-Public Use
  Company Number: US-TEVA-591691USA

PATIENT
  Sex: Male

DRUGS (1)
  1. AMPHETAMINE W/DEXTROAMPHETAMINE [Suspect]
     Active Substance: AMPHETAMINE SULFATE\DEXTROAMPHETAMINE
     Indication: DISTURBANCE IN ATTENTION
     Route: 065

REACTIONS (14)
  - Disturbance in attention [Unknown]
  - Hypersomnia [Unknown]
  - Social problem [Unknown]
  - Impaired work ability [Unknown]
  - Product shape issue [Unknown]
  - Malaise [Unknown]
  - Hyperphagia [Unknown]
  - Product taste abnormal [Unknown]
  - Somnolence [Unknown]
  - Feeling abnormal [Unknown]
  - Drug ineffective [Unknown]
  - Anger [Unknown]
  - Apathy [Unknown]
  - Product formulation issue [Unknown]
